FAERS Safety Report 10370118 (Version 1)
Quarter: 2014Q3

REPORT INFORMATION
  Report Type: Spontaneous
  Country: US (occurrence: US)
  Receive Date: 20140808
  Receipt Date: 20140808
  Transmission Date: 20150326
  Serious: Yes (Other)
  Sender: FDA-Public Use
  Company Number: US-ACCORD-025191

PATIENT
  Age: 51 Year
  Sex: Female

DRUGS (7)
  1. ETOPOSIDE. [Suspect]
     Active Substance: ETOPOSIDE
     Indication: EWING^S SARCOMA
     Dosage: DURING 4TH CYCLE
     Dates: start: 201204
  2. VINCRISTINE [Suspect]
     Active Substance: VINCRISTINE
     Indication: EWING^S SARCOMA
     Dosage: DURING 4TH CYCLE
     Dates: start: 201204
  3. DEXRAZOXANE/DEXRAZOXANE HYDROCHLORIDE [Concomitant]
  4. DACTINOMYCIN [Suspect]
     Active Substance: DACTINOMYCIN
     Indication: EWING^S SARCOMA
     Dosage: DURING 4TH CYLE
  5. IFOSFAMIDE. [Suspect]
     Active Substance: IFOSFAMIDE
     Indication: EWING^S SARCOMA
     Dosage: DURING 4TH CYCLE
     Dates: start: 201204
  6. DOXORUBICIN [Suspect]
     Active Substance: DOXORUBICIN
     Indication: EWING^S SARCOMA
     Dosage: DURING 4TH CYLE
     Dates: start: 201204
  7. CYCLOPHOSPHAMIDE/CYCLOPHOSPHAMIDE MONOHYDRATE [Suspect]
     Active Substance: CYCLOPHOSPHAMIDE
     Indication: EWING^S SARCOMA
     Dosage: DURING 4TH CYCLE
     Dates: start: 201204

REACTIONS (4)
  - Haematotoxicity [Unknown]
  - Off label use [Unknown]
  - Ejection fraction decreased [Unknown]
  - Ewing^s sarcoma [None]
